FAERS Safety Report 8787789 (Version 2)
Quarter: 2015Q1

REPORT INFORMATION
  Report Type: Report from Study
  Country: US (occurrence: US)
  Receive Date: 20120914
  Receipt Date: 20150311
  Transmission Date: 20150721
  Serious: Yes (Death)
  Sender: FDA-Public Use
  Company Number: US-ROCHE-1123363

PATIENT
  Sex: Female

DRUGS (5)
  1. IRINOTECAN [Concomitant]
     Active Substance: IRINOTECAN
  2. LORAZEPAM. [Concomitant]
     Active Substance: LORAZEPAM
     Indication: ANXIETY
     Dosage: PRN
     Route: 048
  3. AVASTIN [Suspect]
     Active Substance: BEVACIZUMAB
     Indication: BRAIN NEOPLASM MALIGNANT
     Dosage: EVERY 42 DAYS 6 WEEKS
     Route: 042
     Dates: start: 20050811
  4. AVASTIN [Suspect]
     Active Substance: BEVACIZUMAB
     Dosage: 8 WEEKS 4 CYCLES
     Route: 042
  5. LORAZEPAM. [Concomitant]
     Active Substance: LORAZEPAM
     Indication: SEIZURE

REACTIONS (2)
  - Off label use [Unknown]
  - Death [Fatal]
